FAERS Safety Report 7105846-7 (Version None)
Quarter: 2010Q4

REPORT INFORMATION
  Report Type: 
  Country: None (occurrence: None)
  Receive Date: 20101116
  Receipt Date: 20101108
  Transmission Date: 20110411
  Serious: Yes (Hospitalization, Congenital Anomaly)
  Sender: FDA-Public Use
  Company Number: A0762557A

PATIENT
  Sex: Male
  Weight: 0.8 kg

DRUGS (3)
  1. PAXIL [Suspect]
     Indication: DEPRESSION
     Dosage: 20MG TWICE PER DAY
     Dates: start: 19920101, end: 20080101
  2. TRILEPTAL [Concomitant]
     Dates: start: 19990101
  3. DILANTIN [Concomitant]
     Dosage: 450MG PER DAY

REACTIONS (5)
  - CARDIAC MURMUR [None]
  - CRANIOSYNOSTOSIS [None]
  - DRUG EXPOSURE DURING PREGNANCY [None]
  - PLAGIOCEPHALY [None]
  - SCAPHOCEPHALY [None]
